FAERS Safety Report 20147977 (Version 6)
Quarter: 2025Q4

REPORT INFORMATION
  Report Type: Spontaneous
  Country: EU (occurrence: EU)
  Receive Date: 20211204
  Receipt Date: 20251005
  Transmission Date: 20260117
  Serious: Yes (Hospitalization, Other)
  Sender: AUROBINDO
  Company Number: EU-ROCHE-2302709

PATIENT
  Age: 52 Year
  Sex: Female
  Weight: 70 kg

DRUGS (39)
  1. DOCETAXEL [Suspect]
     Active Substance: DOCETAXEL
     Indication: Breast cancer
     Dosage: 137.25 MILLIGRAM 3 WEEK
     Route: 042
     Dates: start: 20170130, end: 20170719
  2. DOCETAXEL [Suspect]
     Active Substance: DOCETAXEL
     Indication: HER2 positive breast cancer
     Dosage: 3000  MILLIGRAM
     Route: 048
     Dates: start: 20181016
  3. DOCETAXEL [Suspect]
     Active Substance: DOCETAXEL
     Dosage: 411.75 MILLIGRAM
     Route: 042
     Dates: start: 20170130, end: 20170719
  4. DOCETAXEL [Suspect]
     Active Substance: DOCETAXEL
     Dosage: 1235.25 MILLIGRAM, EVERY WEEK
     Route: 042
     Dates: start: 20170130, end: 20170719
  5. DOCETAXEL [Suspect]
     Active Substance: DOCETAXEL
     Dosage: 411.75 MILLIGRAM
     Route: 042
     Dates: start: 20170719
  6. DOCETAXEL [Suspect]
     Active Substance: DOCETAXEL
     Dosage: 137.25 MILLIGRAM 3 WEEK
     Route: 042
     Dates: start: 20170719
  7. VINORELBINE [Suspect]
     Active Substance: VINORELBINE TARTRATE
     Indication: HER2 positive breast cancer
     Dosage: 48 MILLIGRAM
     Route: 042
     Dates: start: 20190503, end: 20190730
  8. FULVESTRANT [Suspect]
     Active Substance: FULVESTRANT
     Indication: HER2 positive breast cancer
     Dosage: 250 MILLIGRAM, OTHER
     Route: 042
     Dates: start: 20191104, end: 20201221
  9. CAPECITABINE [Suspect]
     Active Substance: CAPECITABINE
     Indication: HER2 positive breast cancer
     Dosage: 3000 MILLIGRAM
     Route: 048
     Dates: start: 20181016
  10. XELODA [Suspect]
     Active Substance: CAPECITABINE
     Indication: HER2 positive breast cancer
     Dosage: 3000 MILLIGRAM
     Route: 048
     Dates: start: 20181016
  11. HALAVEN [Suspect]
     Active Substance: ERIBULIN MESYLATE
     Indication: HER2 positive breast cancer
     Dosage: 2.36 MILLIGRAM
     Route: 042
     Dates: start: 20190903, end: 20191023
  12. LAPATINIB [Suspect]
     Active Substance: LAPATINIB
     Indication: Breast cancer
     Dosage: 1250 MILLIGRAM, ONCE A DAY
     Route: 048
     Dates: start: 20181016
  13. LAPATINIB [Suspect]
     Active Substance: LAPATINIB
     Indication: HER2 positive breast cancer
     Dosage: 1250 MILLIGRAM, ONCE A DAY
     Route: 048
     Dates: start: 20190410
  14. PALBOCICLIB [Suspect]
     Active Substance: PALBOCICLIB
     Indication: HER2 positive breast cancer
     Dosage: 125 MILLIGRAM
     Route: 048
     Dates: start: 20191104
  15. PERJETA [Suspect]
     Active Substance: PERTUZUMAB
     Indication: HER2 positive breast cancer
     Dosage: 840 MILLIGRAM 3 WEEKS MOST RECENT DOSE PRIOR TO THE EVENT: 20/FEB/2017
     Route: 042
     Dates: start: 20170130, end: 20170130
  16. PERJETA [Suspect]
     Active Substance: PERTUZUMAB
     Dosage: 2520 MILLIGRAM, EVERY WEEK
     Route: 042
     Dates: start: 20170130, end: 20170130
  17. TRASTUZUMAB [Suspect]
     Active Substance: TRASTUZUMAB
     Indication: HER2 positive breast cancer
     Dosage: 560 MILLIGRAM 3 WEEK MOST RECENT DOSE PRIOR TO THE EVENT: 20/FEB/2017
     Route: 042
     Dates: start: 20170130, end: 20170130
  18. TRASTUZUMAB [Suspect]
     Active Substance: TRASTUZUMAB
     Dosage: 560 MILLIGRAM 3 WEEK MOST RECENT DOSE PRIOR TO THE EVENT: 20/FEB/2017
     Route: 042
     Dates: start: 20170220, end: 20180521
  19. TRASTUZUMAB [Suspect]
     Active Substance: TRASTUZUMAB
     Dosage: 1680 MILLIGRAM, EVERY WEEK ((560 MG, TIW, START DATE:30- JAN-2017, MOST RECENT DOSE PRIOR TO THE EVE
     Route: 042
     Dates: start: 20170130, end: 20170130
  20. TRASTUZUMAB [Suspect]
     Active Substance: TRASTUZUMAB
     Dosage: 1680 MILLIGRAM, EVERY WEEK
     Route: 042
     Dates: start: 20170220, end: 20180521
  21. KADCYLA [Suspect]
     Active Substance: ADO-TRASTUZUMAB EMTANSINE
     Indication: HER2 positive breast cancer
     Dosage: 3.6 MICROGRAM/KILOGRAM 3 WEEK
     Route: 042
     Dates: start: 20180613, end: 20181001
  22. KADCYLA [Suspect]
     Active Substance: ADO-TRASTUZUMAB EMTANSINE
     Dosage: 10.8 MICROGRAM/KILOGRAM
     Route: 042
     Dates: start: 20181001
  23. TYKERB [Suspect]
     Active Substance: LAPATINIB DITOSYLATE
     Indication: Breast cancer
     Dosage: 1250 MILLIGRAM, ONCE A DAY (1250 MG, QD, START DATE:16-OCT-2018, REPORTED WITH BRAND NAME (TYKERB) A
     Route: 048
     Dates: start: 20181016, end: 20190410
  24. TYKERB [Suspect]
     Active Substance: LAPATINIB DITOSYLATE
     Indication: HER2 positive breast cancer
     Dosage: 1250 MILLIGRAM, ONCE A DAY
     Route: 048
     Dates: start: 20190410
  25. TYKERB [Suspect]
     Active Substance: LAPATINIB DITOSYLATE
     Dosage: 3000 MILLIGRAM
     Route: 048
     Dates: start: 20180116
  26. HERCEPTIN [Suspect]
     Active Substance: TRASTUZUMAB
     Indication: HER2 positive breast cancer
     Dosage: 1680 MILLIGRAM, EVERY WEEK
     Route: 042
     Dates: start: 20170130, end: 20170130
  27. HERCEPTIN [Suspect]
     Active Substance: TRASTUZUMAB
     Dosage: 560 MILLIGRAM, EVERY WEEK
     Route: 042
     Dates: start: 20170220, end: 20180521
  28. HERCEPTIN [Suspect]
     Active Substance: TRASTUZUMAB
     Dosage: 1680 MILLIGRAM, EVERY WEEK
     Route: 042
     Dates: start: 20170220, end: 20180521
  29. ERIBULIN MESYLATE [Suspect]
     Active Substance: ERIBULIN MESYLATE
     Indication: HER2 positive breast cancer
     Dosage: 2.36 MILLIGRAM
     Route: 042
     Dates: start: 20190903, end: 20191023
  30. PERTUZUMAB [Suspect]
     Active Substance: PERTUZUMAB
     Indication: HER2 positive breast cancer
     Dosage: 2520 MILLIGRAM, EVERY WEEK
     Route: 042
     Dates: start: 20170130, end: 20170130
  31. ADO-TRASTUZUMAB EMTANSINE [Suspect]
     Active Substance: ADO-TRASTUZUMAB EMTANSINE
     Indication: HER2 positive breast cancer
     Dosage: 10.8 MICROGRAM/KILOGRAM, EVERY WEEK
     Route: 042
  32. ADO-TRASTUZUMAB EMTANSINE [Suspect]
     Active Substance: ADO-TRASTUZUMAB EMTANSINE
     Dosage: 10.8 MICROGRAM/KILOGRAM, EVERY WEEK
     Route: 042
     Dates: start: 20181001
  33. ADO-TRASTUZUMAB EMTANSINE [Suspect]
     Active Substance: ADO-TRASTUZUMAB EMTANSINE
     Dosage: 10.8 MICROGRAM/KILOGRAM, EVERY WEEK
     Route: 042
     Dates: start: 20180521
  34. LEVOTHYROXINE SODIUM [Concomitant]
     Active Substance: LEVOTHYROXINE SODIUM
     Indication: Product used for unknown indication
     Dosage: UNK
     Route: 065
     Dates: start: 20161219
  35. PANTOPRAZOLE [Concomitant]
     Active Substance: PANTOPRAZOLE
     Indication: Product used for unknown indication
     Dosage: UNK
     Route: 065
     Dates: start: 20181121
  36. ZOLEDRONIC ACID [Concomitant]
     Active Substance: ZOLEDRONIC ACID
     Indication: Product used for unknown indication
     Dosage: UNK (ONGOING = NOT CHECKED)
     Route: 065
     Dates: start: 20191106, end: 20200622
  37. CITALOPRAM [Concomitant]
     Active Substance: CITALOPRAM
     Indication: Product used for unknown indication
     Dosage: UNK
     Route: 065
  38. VALSARTAN [Concomitant]
     Active Substance: VALSARTAN
     Indication: Product used for unknown indication
     Dosage: UNK
     Route: 065
  39. LOSARTAN [Concomitant]
     Active Substance: LOSARTAN
     Indication: Product used for unknown indication
     Dosage: UNK
     Route: 065

REACTIONS (11)
  - Hepatic failure [Unknown]
  - Renal failure [Unknown]
  - Somnolence [Unknown]
  - Malaise [Unknown]
  - Dizziness [Unknown]
  - Jaundice [Unknown]
  - Vomiting [Unknown]
  - Blood creatinine increased [Recovered/Resolved]
  - Blood bilirubin increased [Recovered/Resolved]
  - Fatigue [Recovered/Resolved]
  - Rash [Recovered/Resolved]

NARRATIVE: CASE EVENT DATE: 20190109
